FAERS Safety Report 4987787-4 (Version None)
Quarter: 2006Q2

REPORT INFORMATION
  Report Type: 
  Country: None (occurrence: None)
  Receive Date: 20060424
  Receipt Date: 20060404
  Transmission Date: 20061013
  Serious: Yes (Hospitalization)
  Sender: FDA-Public Use
  Company Number: EWC051046657

PATIENT
  Age: 74 Year
  Sex: Female

DRUGS (8)
  1. FORTEO [Suspect]
     Indication: OSTEOPOROSIS
     Dosage: 20 UG, DAILY (1/D), ORAL
     Route: 048
     Dates: start: 20050422, end: 20050909
  2. FORTEO [Concomitant]
  3. ASCAL (ACETYLSALICYLATE CALCIUM) [Concomitant]
  4. ATENOLOL [Concomitant]
  5. VENLAFAXINE HCL [Concomitant]
  6. CALCICHEW (CALCIUM CARBONATE) [Concomitant]
  7. OXAZEPAM [Concomitant]
  8. HYDROCHLOROTHIAZIDE [Concomitant]

REACTIONS (1)
  - GROIN PAIN [None]
